FAERS Safety Report 24396838 (Version 4)
Quarter: 2025Q1

REPORT INFORMATION
  Report Type: Spontaneous
  Country: FR (occurrence: FR)
  Receive Date: 20241004
  Receipt Date: 20250213
  Transmission Date: 20250408
  Serious: Yes (Hospitalization, Other)
  Sender: FRESENIUS KABI
  Company Number: None

PATIENT
  Age: 83 Year
  Sex: Male

DRUGS (8)
  1. POSACONAZOLE [Suspect]
     Active Substance: POSACONAZOLE
     Indication: Fungal infection
     Dosage: 300 MG MORNING AND EVENING FOR 24 HOURS?ROUTE OF ADMINISTRATION: ORAL
  2. AZACITIDINE [Suspect]
     Active Substance: AZACITIDINE
     Indication: Acute myeloid leukaemia
     Route: 058
     Dates: end: 202406
  3. VENETOCLAX [Suspect]
     Active Substance: VENETOCLAX
     Indication: Acute myeloid leukaemia
     Route: 042
     Dates: end: 202406
  4. VENETOCLAX [Suspect]
     Active Substance: VENETOCLAX
     Indication: Acute myeloid leukaemia
     Dosage: FORM STRENGTH: 400 MILLIGRAM?FORM OF ADMIN.: FILM-COATED TABLET
     Route: 048
     Dates: end: 20240521
  5. VENETOCLAX [Suspect]
     Active Substance: VENETOCLAX
     Indication: Haematological malignancy
     Route: 048
     Dates: end: 20240524
  6. VENETOCLAX [Suspect]
     Active Substance: VENETOCLAX
     Route: 048
     Dates: end: 20240523
  7. VENETOCLAX [Suspect]
     Active Substance: VENETOCLAX
     Route: 048
     Dates: end: 20240522
  8. PIPERACILLIN SODIUM\TAZOBACTAM SODIUM [Concomitant]
     Active Substance: PIPERACILLIN SODIUM\TAZOBACTAM SODIUM
     Indication: Pyrexia
     Dosage: ROA: INTRAVENOUS
     Route: 042

REACTIONS (13)
  - Dermatitis exfoliative generalised [Unknown]
  - Eczema [Recovered/Resolved]
  - Skin exfoliation [Unknown]
  - Toxic skin eruption [Unknown]
  - Vascular purpura [Recovered/Resolved]
  - Congenital aplasia [Unknown]
  - Erythema [Unknown]
  - Rash maculo-papular [Unknown]
  - Pyrexia [Unknown]
  - Anaemia [Unknown]
  - Blood immunoglobulin A increased [Unknown]
  - Face oedema [Unknown]
  - Eczema [Unknown]

NARRATIVE: CASE EVENT DATE: 20240101
